FAERS Safety Report 4280334-4 (Version None)
Quarter: 2004Q1

REPORT INFORMATION
  Report Type: 
  Country: None (occurrence: None)
  Receive Date: 20040127
  Receipt Date: 20040112
  Transmission Date: 20041129
  Serious: Yes (Hospitalization)
  Sender: FDA-Public Use
  Company Number: 7152

PATIENT
  Age: 34 Year
  Sex: Male

DRUGS (1)
  1. BLEOMYCIN [Suspect]
     Indication: TESTICULAR NEOPLASM

REACTIONS (2)
  - CRYPTOGENIC ORGANIZING PNEUMONIA [None]
  - PULMONARY TOXICITY [None]
